FAERS Safety Report 4868615-4 (Version None)
Quarter: 2005Q4

REPORT INFORMATION
  Report Type: 
  Country: None (occurrence: None)
  Receive Date: 20051223
  Receipt Date: 20051212
  Transmission Date: 20060501
  Serious: Yes (Other)
  Sender: FDA-Public Use
  Company Number: 2005168731

PATIENT
  Sex: Female
  Weight: 86.1834 kg

DRUGS (6)
  1. CELEBREX [Suspect]
     Indication: ARTHRALGIA
     Dosage: 400 MG (200 MG, 2 IN 1 D)
  2. LODINE [Concomitant]
  3. K-DUR 10 [Concomitant]
  4. ALLEGRA [Concomitant]
  5. WELLBUTRIN [Concomitant]
  6. LASIX [Concomitant]

REACTIONS (10)
  - BACK PAIN [None]
  - BLOOD CHOLESTEROL INCREASED [None]
  - BODY HEIGHT DECREASED [None]
  - DRUG INEFFECTIVE [None]
  - GASTRIC ULCER [None]
  - HIATUS HERNIA [None]
  - NEUROPATHY [None]
  - OESOPHAGEAL DISORDER [None]
  - PAIN IN EXTREMITY [None]
  - SPINAL CORD DISORDER [None]
